FAERS Safety Report 8931311 (Version 2)
Quarter: 2013Q1

REPORT INFORMATION
  Report Type: Spontaneous
  Country: US (occurrence: US)
  Receive Date: 20121128
  Receipt Date: 20130108
  Transmission Date: 20140127
  Serious: No
  Sender: FDA-Public Use
  Company Number: US-PFIZER INC-2012296923

PATIENT
  Age: 32 Year
  Sex: Female
  Weight: 61 kg

DRUGS (2)
  1. LEVOXYL [Suspect]
     Indication: HYPOTHYROIDISM
     Dosage: 112 MCG ORAL TABLET 1XDAY FOR 5  DAYS A WEEK AND 125MCG ORAL TABLET 1XDAY FOR TWO DAYS A WEEK
     Route: 048
     Dates: start: 2008
  2. LEVOXYL [Suspect]
     Dosage: 125 UG, 1X/DAY
     Route: 048
     Dates: start: 20121125

REACTIONS (1)
  - Drug ineffective [Unknown]
